FAERS Safety Report 9356256 (Version 3)
Quarter: 2014Q1

REPORT INFORMATION
  Report Type: Spontaneous
  Country: IT (occurrence: None)
  Receive Date: 20130614
  Receipt Date: 20140225
  Transmission Date: 20141002
  Serious: Yes (Other)
  Sender: FDA-Public Use
  Company Number: 2013AP005964

PATIENT
  Age: 32 Year
  Sex: Female

DRUGS (3)
  1. VENLAFAXINE [Suspect]
     Indication: DRUG ABUSE
     Dosage: TOTAL
     Route: 048
     Dates: start: 20130423, end: 20130423
  2. ALPRAZOLAM [Suspect]
     Indication: DRUG ABUSE
     Dosage: TOTAL
     Route: 048
     Dates: start: 20130423, end: 20130423
  3. GABAPENTIN (GABAPENTIN) [Suspect]
     Indication: DRUG ABUSE
     Dosage: TOTAL
     Route: 048
     Dates: start: 20130423, end: 20130423

REACTIONS (2)
  - Sopor [None]
  - Speech disorder [None]
